FAERS Safety Report 6559267-6 (Version None)
Quarter: 2010Q1

REPORT INFORMATION
  Report Type: 
  Country: None (occurrence: None)
  Receive Date: 20100129
  Receipt Date: 20090908
  Transmission Date: 20100710
  Serious: No
  Sender: FDA-Public Use
  Company Number: US-ABBOTT-09P-163-0591320-00

PATIENT

DRUGS (2)
  1. HUMIRA [Suspect]
     Indication: ACCIDENTAL EXPOSURE
     Dosage: UNKNOWN
  2. HUMIRA [Suspect]
     Dosage: HUMIRA PRE-FILLED SYRINGE

REACTIONS (1)
  - ACCIDENTAL EXPOSURE [None]
